FAERS Safety Report 13507023 (Version 7)
Quarter: 2017Q4

REPORT INFORMATION
  Report Type: Report from Study
  Country: US (occurrence: US)
  Receive Date: 20170503
  Receipt Date: 20171026
  Transmission Date: 20180320
  Serious: Yes (Other)
  Sender: FDA-Public Use
  Company Number: PHEH2017US012593

PATIENT
  Sex: Female

DRUGS (1)
  1. KISQALI [Suspect]
     Active Substance: RIBOCICLIB
     Indication: PRODUCT USED FOR UNKNOWN INDICATION
     Route: 048

REACTIONS (5)
  - Nausea [Unknown]
  - Musculoskeletal chest pain [Unknown]
  - Blood glucose increased [Unknown]
  - Carcinoembryonic antigen increased [Unknown]
  - Drug ineffective [Unknown]
